FAERS Safety Report 23760872 (Version 1)
Quarter: 2024Q2

REPORT INFORMATION
  Report Type: Other
  Country: CN (occurrence: CN)
  Receive Date: 20240419
  Receipt Date: 20240419
  Transmission Date: 20240716
  Serious: Yes (Life-Threatening, Hospitalization)
  Sender: FDA-Public Use
  Company Number: CN-B.Braun Medical Inc.-2155751

PATIENT
  Age: 60 Year
  Sex: Male

DRUGS (1)
  1. MANNITOL [Suspect]
     Active Substance: MANNITOL
     Indication: Bowel preparation

REACTIONS (3)
  - Vomiting [Recovered/Resolved]
  - Off label use [Recovered/Resolved]
  - Oesophageal rupture [Recovered/Resolved]
